FAERS Safety Report 8203649-3 (Version None)
Quarter: 2012Q1

REPORT INFORMATION
  Report Type: 
  Country: None (occurrence: None)
  Receive Date: 20120308
  Receipt Date: 20120222
  Transmission Date: 20120608
  Serious: Yes (Death)
  Sender: FDA-Public Use
  Company Number: US-2012-10220

PATIENT
  Age: 26 Year
  Sex: Female

DRUGS (2)
  1. BUSULFAN [Suspect]
     Indication: STEM CELL TRANSPLANT
  2. FLUDARABINE PHOSPHATE [Concomitant]

REACTIONS (3)
  - CONDITION AGGRAVATED [None]
  - NEUROBLASTOMA [None]
  - ACUTE MYELOID LEUKAEMIA [None]
